FAERS Safety Report 10045233 (Version 1)
Quarter: 2014Q1

REPORT INFORMATION
  Report Type: Other
  Country: SE (occurrence: SE)
  Receive Date: 20140328
  Receipt Date: 20140328
  Transmission Date: 20141002
  Serious: Yes (Other)
  Sender: FDA-Public Use
  Company Number: SE-BRISTOL-MYERS SQUIBB COMPANY-20580189

PATIENT
  Age: 14 Year
  Sex: Female

DRUGS (2)
  1. IFOSFAMIDE [Suspect]
     Indication: OSTEOSARCOMA
     Dosage: 1DF=G/M2
  2. CISPLATIN [Suspect]
     Indication: OSTEOSARCOMA

REACTIONS (1)
  - Ovarian disorder [Unknown]
